FAERS Safety Report 12658225 (Version 24)
Quarter: 2021Q1

REPORT INFORMATION
  Report Type: Other
  Country: CA (occurrence: CA)
  Receive Date: 20160817
  Receipt Date: 20210219
  Transmission Date: 20210419
  Serious: Yes (Hospitalization, Other)
  Sender: FDA-Public Use
  Company Number: CA-ROCHE-1814783

PATIENT
  Age: 22 Year
  Sex: Female

DRUGS (18)
  1. XOLAIR [Suspect]
     Active Substance: OMALIZUMAB
     Route: 058
     Dates: start: 20190912
  2. SINGULAIR [Concomitant]
     Active Substance: MONTELUKAST SODIUM
     Indication: PRODUCT USED FOR UNKNOWN INDICATION
     Route: 065
  3. XOLAIR [Suspect]
     Active Substance: OMALIZUMAB
     Route: 058
     Dates: start: 20160817
  4. XOLAIR [Suspect]
     Active Substance: OMALIZUMAB
     Route: 058
     Dates: start: 20180411
  5. XOLAIR [Suspect]
     Active Substance: OMALIZUMAB
     Route: 058
     Dates: start: 20180314
  6. XOLAIR [Suspect]
     Active Substance: OMALIZUMAB
     Route: 058
     Dates: start: 20180806
  7. XOLAIR [Suspect]
     Active Substance: OMALIZUMAB
     Route: 058
     Dates: start: 20190808
  8. XOLAIR [Suspect]
     Active Substance: OMALIZUMAB
     Route: 058
     Dates: start: 20191206
  9. XOLAIR [Suspect]
     Active Substance: OMALIZUMAB
     Indication: ASTHMA
     Route: 058
     Dates: start: 20160303
  10. XOLAIR [Suspect]
     Active Substance: OMALIZUMAB
     Route: 058
     Dates: start: 20181015
  11. XOLAIR [Suspect]
     Active Substance: OMALIZUMAB
     Route: 058
     Dates: start: 20190712
  12. XOLAIR [Suspect]
     Active Substance: OMALIZUMAB
     Route: 058
     Dates: start: 20170405
  13. XOLAIR [Suspect]
     Active Substance: OMALIZUMAB
     Route: 058
     Dates: start: 20170601
  14. XOLAIR [Suspect]
     Active Substance: OMALIZUMAB
     Route: 058
     Dates: start: 2019
  15. XOLAIR [Suspect]
     Active Substance: OMALIZUMAB
     Route: 058
     Dates: start: 20170221
  16. XOLAIR [Suspect]
     Active Substance: OMALIZUMAB
     Route: 058
     Dates: start: 20170829
  17. XOLAIR [Suspect]
     Active Substance: OMALIZUMAB
     Route: 058
     Dates: start: 20170929
  18. SYMBICORT [Concomitant]
     Active Substance: BUDESONIDE\FORMOTEROL FUMARATE DIHYDRATE
     Indication: PRODUCT USED FOR UNKNOWN INDICATION
     Route: 065

REACTIONS (38)
  - Cyst [Unknown]
  - Chills [Recovered/Resolved]
  - Gluten sensitivity [Unknown]
  - Erythema [Unknown]
  - Cough [Not Recovered/Not Resolved]
  - Pharyngeal swelling [Unknown]
  - Respiratory rate increased [Unknown]
  - Bronchitis [Unknown]
  - Multiple sclerosis [Not Recovered/Not Resolved]
  - Productive cough [Unknown]
  - Infection [Unknown]
  - Ovarian cyst ruptured [Recovering/Resolving]
  - Paraesthesia [Recovering/Resolving]
  - Nasopharyngitis [Recovered/Resolved]
  - Depression [Unknown]
  - Gastrointestinal disorder [Unknown]
  - Dermatitis [Unknown]
  - Dyspnoea [Not Recovered/Not Resolved]
  - Lactose intolerance [Unknown]
  - Illness [Unknown]
  - Psoriasis [Unknown]
  - Wheezing [Unknown]
  - Swelling face [Unknown]
  - Ovarian cyst [Unknown]
  - Brain neoplasm [Unknown]
  - Headache [Unknown]
  - Abdominal pain upper [Unknown]
  - Weight increased [Unknown]
  - Injection site reaction [Unknown]
  - Myalgia [Recovered/Resolved]
  - Peripheral swelling [Unknown]
  - Dizziness [Unknown]
  - Throat irritation [Unknown]
  - Upper respiratory tract infection [Unknown]
  - Insomnia [Unknown]
  - Sputum discoloured [Recovered/Resolved]
  - Secretion discharge [Recovered/Resolved]
  - Product dose omission issue [Unknown]

NARRATIVE: CASE EVENT DATE: 20160304
